FAERS Safety Report 9628587 (Version 2)
Quarter: 2013Q4

REPORT INFORMATION
  Report Type: Spontaneous
  Country: PT (occurrence: PT)
  Receive Date: 20131017
  Receipt Date: 20131024
  Transmission Date: 20140711
  Serious: Yes (Hospitalization)
  Sender: FDA-Public Use
  Company Number: PT-RANBAXY-2013RR-74187

PATIENT
  Age: 62 Year
  Sex: Female

DRUGS (1)
  1. DONEPEZIL [Suspect]
     Indication: VASCULAR DEMENTIA
     Dosage: 5 MG
     Route: 065

REACTIONS (1)
  - Epilepsy [Recovered/Resolved]
